FAERS Safety Report 25764265 (Version 1)
Quarter: 2025Q3

REPORT INFORMATION
  Report Type: Spontaneous
  Country: US (occurrence: US)
  Receive Date: 20250905
  Receipt Date: 20250905
  Transmission Date: 20251021
  Serious: No
  Sender: DOMPE FARMACEUTICI
  Company Number: US-FARMAPROD-202412-4313

PATIENT
  Sex: Male

DRUGS (17)
  1. OXERVATE [Suspect]
     Active Substance: CENEGERMIN-BKBJ
     Indication: Neurotrophic keratopathy
     Route: 047
     Dates: start: 20241114
  2. MIEBO [Concomitant]
     Active Substance: PERFLUOROHEXYLOCTANE
  3. CYCLOSPORINE [Concomitant]
     Active Substance: CYCLOSPORINE
  4. FLUOROMETHOLONE [Concomitant]
     Active Substance: FLUOROMETHOLONE
  5. TRAMADOL HCL [Concomitant]
     Active Substance: TRAMADOL HYDROCHLORIDE
  6. FISH OIL [Concomitant]
     Active Substance: FISH OIL
  7. B-COMPLEX WITH VITAMIN C [Concomitant]
  8. MULTI-VITAMIN DAILY [Concomitant]
  9. ALBUTEROL SULFATE [Concomitant]
     Active Substance: ALBUTEROL SULFATE
  10. FIBERCON [Concomitant]
     Active Substance: CALCIUM POLYCARBOPHIL
  11. OZEMPIC [Concomitant]
     Active Substance: SEMAGLUTIDE
  12. GLIPIZIDE [Concomitant]
     Active Substance: GLIPIZIDE
  13. CITALOPRAM HYDROBROMIDE [Concomitant]
     Active Substance: CITALOPRAM HYDROBROMIDE
  14. PROTONIX [Concomitant]
     Active Substance: PANTOPRAZOLE SODIUM
  15. LAMOTRIGINE [Concomitant]
     Active Substance: LAMOTRIGINE
  16. TOPIRAMATE [Concomitant]
     Active Substance: TOPIRAMATE
  17. MESALAMINE [Concomitant]
     Active Substance: MESALAMINE

REACTIONS (1)
  - Headache [Unknown]
